FAERS Safety Report 16053151 (Version 1)
Quarter: 2019Q1

REPORT INFORMATION
  Report Type: Spontaneous
  Country: SI (occurrence: SI)
  Receive Date: 20190308
  Receipt Date: 20190308
  Transmission Date: 20190418
  Serious: Yes (Hospitalization, Other)
  Sender: FDA-Public Use
  Company Number: SI-BAYER-2019-047684

PATIENT
  Age: 79 Year
  Sex: Female

DRUGS (12)
  1. CONCOR [Concomitant]
     Active Substance: BISOPROLOL FUMARATE
     Dosage: 2.5 MG, UNK
  2. ADALAT [Suspect]
     Active Substance: NIFEDIPINE
     Dosage: 60 MG, UNK
  3. TENZOPRIL HCT [Concomitant]
  4. KAMIREN [Concomitant]
     Dosage: 8 MG, UNK
  5. PLIVIT D3 [Concomitant]
     Active Substance: CHOLECALCIFEROL
     Dosage: 35 DROP, OW
  6. TENZOPRIL [Concomitant]
     Active Substance: ZOFENOPRIL
     Dosage: 30 MG, UNK
  7. ASPIRIN PROTECT 100 MG [Suspect]
     Active Substance: ASPIRIN
     Dosage: 100 MG, UNK
  8. TRAJENTA [Concomitant]
     Active Substance: LINAGLIPTIN
  9. GLURENORM [Concomitant]
     Active Substance: GLIQUIDONE
     Dosage: UNK
  10. EDEMID [Concomitant]
     Active Substance: FUROSEMIDE
     Dosage: 1 DF, UNK
  11. MIMPARA [Concomitant]
     Active Substance: CINACALCET HYDROCHLORIDE
  12. NOLPAZA [Concomitant]
     Active Substance: PANTOPRAZOLE SODIUM
     Dosage: 20 MG, UNK

REACTIONS (9)
  - Atrial fibrillation [None]
  - Oedema peripheral [Recovered/Resolved]
  - Cardiac failure acute [None]
  - Heart rate irregular [None]
  - Dyspnoea [Recovered/Resolved]
  - Chest pain [Recovered/Resolved]
  - Pulmonary oedema [None]
  - Hypertension [Recovered/Resolved]
  - Weight decreased [None]
